FAERS Safety Report 6147066-9 (Version None)
Quarter: 2009Q2

REPORT INFORMATION
  Report Type: 
  Country: None (occurrence: None)
  Receive Date: 20090403
  Receipt Date: 20090330
  Transmission Date: 20091009
  Serious: Yes (Death)
  Sender: FDA-Public Use
  Company Number: 2008JP004598

PATIENT
  Age: 53 Year
  Sex: Male
  Weight: 56 kg

DRUGS (9)
  1. FUNGUARD(MICAFUNGIN) INJECTION [Suspect]
     Indication: INFECTION PROPHYLAXIS
     Dosage: 50 MG, UID/QD, IV DRIP
     Route: 041
     Dates: start: 20080412, end: 20080514
  2. ITRACONAZOLE (ITRACONAZOLE) PER ORAL NOS [Concomitant]
  3. CYLOCIDE-N (CYTARABINE) INJECTION [Concomitant]
  4. CYCLOPHOSPHAMIDE [Concomitant]
  5. METHOTREXATE [Concomitant]
  6. CICLOSPORIN INJECTION [Concomitant]
  7. NEUPOGEN [Concomitant]
  8. VENOFLOBULIN-IH (IMMUNOGLOBULIN HUMAN NORMAL) FORMULATION UNKNOWN [Concomitant]
  9. STRONGER NEO MINOPHAGEN C (AMINOACETIC ACID, GLYCYRRHIZIC ACID, CYSTEI [Concomitant]

REACTIONS (11)
  - ALANINE AMINOTRANSFERASE INCREASED [None]
  - BLOOD CULTURE POSITIVE [None]
  - BONE MARROW FAILURE [None]
  - CRYPTOCOCCUS ANTIGEN POSITIVE [None]
  - DRUG INEFFECTIVE [None]
  - ENGRAFT FAILURE [None]
  - LIVER DISORDER [None]
  - PYREXIA [None]
  - RASH [None]
  - STEM CELL TRANSPLANT [None]
  - TRICHOSPORON INFECTION [None]
